FAERS Safety Report 9004413 (Version 1)
Quarter: 2013Q1

REPORT INFORMATION
  Report Type: Spontaneous
  Country: US (occurrence: None)
  Receive Date: 20130104
  Receipt Date: 20130104
  Transmission Date: 20140127
  Serious: No
  Sender: FDA-Public Use
  Company Number: None

PATIENT
  Age: 73 Year
  Sex: Female
  Weight: 56.7 kg

DRUGS (3)
  1. TOBRAMYCIN/DEXAMETHASONE SUSP [Suspect]
     Indication: SUPERFICIAL INJURY OF EYE
     Dosage: 1 DROP BOTH EYES 4X DAILY
     Dates: start: 20120926, end: 20120928
  2. TOBRAMYCIN/DEXAMETHASONE SUSP [Suspect]
     Indication: DRY EYE
     Dosage: 1 DROP BOTH EYES 4X DAILY
     Dates: start: 20120926, end: 20120928
  3. VITAMIN [Concomitant]

REACTIONS (1)
  - Therapeutic response unexpected [None]
